FAERS Safety Report 6927625-3 (Version None)
Quarter: 2010Q3

REPORT INFORMATION
  Report Type: 
  Country: None (occurrence: None)
  Receive Date: 20100817
  Receipt Date: 20100803
  Transmission Date: 20110219
  Serious: No
  Sender: FDA-Public Use
  Company Number: PHHY2010US51648

PATIENT
  Sex: Male

DRUGS (9)
  1. TASIGNA [Suspect]
     Indication: WHITE BLOOD CELL DISORDER
     Dosage: 400 MG DAILY
     Route: 048
     Dates: start: 20080311
  2. CALTRATE [Concomitant]
  3. SIMVASTATIN [Concomitant]
  4. NIASPAN [Concomitant]
  5. COREG [Concomitant]
  6. GLIPIZIDE [Concomitant]
  7. METFORMIN [Concomitant]
  8. DIOVAN [Concomitant]
  9. OMEPRAZOLE [Concomitant]

REACTIONS (2)
  - DRUG INTERACTION [None]
  - GASTRIC PH INCREASED [None]
